FAERS Safety Report 8082884 (Version 11)
Quarter: 2018Q3

REPORT INFORMATION
  Report Type: Spontaneous
  Country: DE (occurrence: DE)
  Receive Date: 20110809
  Receipt Date: 20180814
  Transmission Date: 20181010
  Serious: Yes (Life-Threatening, Other)
  Sender: FDA-Public Use
  Company Number: DE-PFIZER INC-2011160810

PATIENT
  Age: 53 Year
  Sex: Female
  Weight: 51 kg

DRUGS (2)
  1. SOBELIN [Suspect]
     Active Substance: CLINDAMYCIN HYDROCHLORIDE
     Indication: TOOTHACHE
     Dosage: 900 MG, DAILY
     Route: 048
     Dates: start: 20070122, end: 20070127
  2. SOBELIN [Suspect]
     Active Substance: CLINDAMYCIN HYDROCHLORIDE
     Indication: PULPITIS DENTAL

REACTIONS (21)
  - Pseudomembranous colitis [Recovered/Resolved]
  - Tenosynovitis [Unknown]
  - Weight decreased [Recovered/Resolved]
  - Parosmia [Unknown]
  - Loss of personal independence in daily activities [Unknown]
  - Dysgeusia [Unknown]
  - Diarrhoea [Recovered/Resolved]
  - Exercise tolerance decreased [Recovered/Resolved]
  - Circadian rhythm sleep disorder [Unknown]
  - Trichoglossia [Recovering/Resolving]
  - Arthropathy [Unknown]
  - Abdominal pain [Recovered/Resolved]
  - Mental fatigue [Recovered/Resolved]
  - Asthenia [Unknown]
  - Fatigue [Unknown]
  - Adjustment disorder with depressed mood [Recovered/Resolved]
  - Bone pain [Unknown]
  - Arthralgia [Unknown]
  - Nausea [Unknown]
  - Joint stiffness [Unknown]
  - Sleep disorder [Unknown]

NARRATIVE: CASE EVENT DATE: 2007
